FAERS Safety Report 4383852-3 (Version None)
Quarter: 2004Q2

REPORT INFORMATION
  Report Type: 
  Country: None (occurrence: None)
  Receive Date: 20040614
  Receipt Date: 20040223
  Transmission Date: 20050107
  Serious: Yes (Hospitalization)
  Sender: FDA-Public Use
  Company Number: M04-341-022

PATIENT
  Age: 50 Year
  Sex: Male
  Weight: 84 kg

DRUGS (6)
  1. VELCADE [Suspect]
     Indication: METASTATIC MALIGNANT MELANOMA
     Dosage: 1.3MG/M2: INTRAVENOUS
     Route: 042
     Dates: start: 20031125, end: 20031229
  2. ARANESP (DARBEPOETNI ALFA) [Concomitant]
  3. COLACE (DOCUSATE SODIUM) [Concomitant]
  4. CORTAB (DIPYRIDAMOLE) [Concomitant]
  5. MEGACE [Concomitant]
  6. TEMOZOLOMIDE [Concomitant]

REACTIONS (4)
  - ABDOMINAL DISTENSION [None]
  - ARTERIAL HAEMORRHAGE [None]
  - DYSPNOEA [None]
  - PLEURAL EFFUSION [None]
